FAERS Safety Report 12012904 (Version 1)
Quarter: 2016Q1

REPORT INFORMATION
  Report Type: Spontaneous
  Country: SE (occurrence: SE)
  Receive Date: 20160205
  Receipt Date: 20160205
  Transmission Date: 20160526
  Serious: Yes (Other)
  Sender: FDA-Public Use
  Company Number: SE-ABBVIE-16P-150-1555031-00

PATIENT
  Age: 42 Year
  Sex: Female

DRUGS (3)
  1. KLACID [Suspect]
     Active Substance: CLARITHROMYCIN
     Indication: HELICOBACTER INFECTION
     Route: 065
     Dates: start: 20150624, end: 20150705
  2. AMIMOX [Suspect]
     Active Substance: AMOXICILLIN
     Indication: HELICOBACTER INFECTION
     Route: 065
     Dates: start: 20150624, end: 20150705
  3. NEXIUM [Suspect]
     Active Substance: ESOMEPRAZOLE MAGNESIUM
     Indication: HELICOBACTER INFECTION
     Route: 065
     Dates: start: 20150624, end: 20150705

REACTIONS (3)
  - Rash pruritic [Unknown]
  - Diarrhoea [Unknown]
  - Oral fungal infection [Unknown]

NARRATIVE: CASE EVENT DATE: 20150624
